FAERS Safety Report 6376451-5 (Version None)
Quarter: 2009Q3

REPORT INFORMATION
  Report Type: 
  Country: None (occurrence: None)
  Receive Date: 20090922
  Receipt Date: 20090922
  Transmission Date: 20100115
  Serious: Yes (Other)
  Sender: FDA-Public Use
  Company Number: None

PATIENT
  Age: 33 Year
  Sex: Female
  Weight: 113.3993 kg

DRUGS (12)
  1. LOVAZA [Suspect]
     Indication: HYPERLIPIDAEMIA
     Dosage: 2 CAPSULES 2X/DAY PO
     Route: 048
     Dates: start: 20090615, end: 20090905
  2. HUMALOG INSULIN VIA INSULIN PUMP [Concomitant]
  3. ADDERALL 10 [Concomitant]
  4. VENLAFAXINE ER [Concomitant]
  5. CYCLOBENZAPRENE [Concomitant]
  6. HYDROCODONE BITARTRATE AND ACETAMINOPHEN [Concomitant]
  7. PROBIOTIC PEARLS [Concomitant]
  8. TETRACYCLINE [Concomitant]
  9. ANIMAS 2020 INSULIN PUMP [Concomitant]
  10. ABBOTT FREESTYLE NAVIGATOR CGMS DEVICE [Concomitant]
  11. TENS UNIT [Concomitant]
  12. LOVAZA [Suspect]

REACTIONS (2)
  - HYPERGLYCAEMIA [None]
  - INSULIN RESISTANCE [None]
